FAERS Safety Report 20777574 (Version 2)
Quarter: 2022Q3

REPORT INFORMATION
  Report Type: Spontaneous
  Country: GB (occurrence: GB)
  Receive Date: 20220503
  Receipt Date: 20220708
  Transmission Date: 20221027
  Serious: Yes (Other)
  Sender: FDA-Public Use
  Company Number: GB-JNJFOC-20220447651

PATIENT
  Sex: Female

DRUGS (4)
  1. PREZISTA [Suspect]
     Active Substance: DARUNAVIR ETHANOLATE
     Indication: Product used for unknown indication
     Route: 048
  2. DESCOVY [Suspect]
     Active Substance: EMTRICITABINE\TENOFOVIR ALAFENAMIDE FUMARATE
     Indication: Product used for unknown indication
     Dosage: 200/10 MG (LOW DOSE)
     Route: 065
  3. NORVIR [Suspect]
     Active Substance: RITONAVIR
     Indication: Product used for unknown indication
     Route: 065
  4. RITONAVIR [Concomitant]
     Active Substance: RITONAVIR

REACTIONS (24)
  - Weight decreased [Unknown]
  - Malnutrition [Unknown]
  - Malnutrition [Unknown]
  - Malabsorption [Unknown]
  - Malabsorption [Unknown]
  - Arthralgia [Unknown]
  - Back pain [Unknown]
  - Pain in extremity [Unknown]
  - Night sweats [Unknown]
  - Blood glucose fluctuation [Unknown]
  - Blood glucose increased [Unknown]
  - Blood cholesterol increased [Unknown]
  - Blood cholesterol increased [Unknown]
  - Headache [Unknown]
  - Protein urine present [Unknown]
  - Protein urine present [Unknown]
  - Musculoskeletal pain [Unknown]
  - Night sweats [Unknown]
  - Pain [Unknown]
  - Pain [Unknown]
  - Decubitus ulcer [Unknown]
  - Weight decreased [Unknown]
  - Headache [Unknown]
  - Nightmare [Unknown]
